FAERS Safety Report 8619466 (Version 2)
Quarter: 2013Q1

REPORT INFORMATION
  Report Type: Spontaneous
  Country: BR (occurrence: BR)
  Receive Date: 20120618
  Receipt Date: 20130123
  Transmission Date: 20140127
  Serious: Yes (Other)
  Sender: FDA-Public Use
  Company Number: BR-AMGEN-BRASP2012035278

PATIENT
  Age: 56 Year
  Sex: Female
  Weight: 59 kg

DRUGS (6)
  1. ENBREL [Suspect]
     Indication: RHEUMATOID ARTHRITIS
     Dosage: 50 MG, WEEKLY
     Route: 058
     Dates: start: 201112, end: 201209
  2. ENBREL [Suspect]
     Indication: PSORIASIS
  3. ENALAPRIL [Concomitant]
     Dosage: 10 MG, 1X/DAY
  4. METHOTREXATE [Concomitant]
     Dosage: 2.5 MG, ONCE WEEKLY
  5. VITAMIN D /00107901/ [Concomitant]
     Dosage: UNK
  6. FOLIC ACID [Concomitant]
     Dosage: TWICE WEEKLY

REACTIONS (5)
  - Adenocarcinoma [Not Recovered/Not Resolved]
  - Haematochezia [Not Recovered/Not Resolved]
  - Thyroid neoplasm [Not Recovered/Not Resolved]
  - Gastrointestinal carcinoma [Unknown]
  - Pain [Not Recovered/Not Resolved]
